FAERS Safety Report 20369699 (Version 1)
Quarter: 2022Q1

REPORT INFORMATION
  Report Type: Report from Study
  Country: DE (occurrence: DE)
  Receive Date: 20220124
  Receipt Date: 20220124
  Transmission Date: 20220423
  Serious: Yes (Hospitalization)
  Sender: FDA-Public Use
  Company Number: DE-JNJFOC-20220121818

PATIENT
  Age: 68 Year
  Sex: Female
  Weight: 85 kg

DRUGS (2)
  1. BORTEZOMIB [Suspect]
     Active Substance: BORTEZOMIB
     Indication: Diffuse large B-cell lymphoma
     Dosage: 2.5 MILLIGRAM
     Route: 058
     Dates: start: 20211030
  2. IBRUTINIB [Suspect]
     Active Substance: IBRUTINIB
     Indication: Diffuse large B-cell lymphoma
     Dosage: 420 MILLIGRAM, QD
     Route: 048
     Dates: start: 20211108

REACTIONS (1)
  - Pancytopenia [Recovered/Resolved]

NARRATIVE: CASE EVENT DATE: 20220110
